FAERS Safety Report 24058078 (Version 1)
Quarter: 2024Q3

REPORT INFORMATION
  Report Type: Spontaneous
  Country: US (occurrence: US)
  Receive Date: 20240707
  Receipt Date: 20240707
  Transmission Date: 20241017
  Serious: No
  Sender: DAIICHI
  Company Number: US-DSJP-DSJ-2024-130233

PATIENT
  Age: 70 Year
  Sex: Female

DRUGS (2)
  1. TRASTUZUMAB DERUXTECAN [Suspect]
     Active Substance: TRASTUZUMAB DERUXTECAN
     Indication: Breast cancer metastatic
     Dosage: UNK
     Route: 065
     Dates: start: 202212
  2. CAPECITABINE [Suspect]
     Active Substance: CAPECITABINE
     Indication: Breast cancer metastatic
     Dosage: UNK
     Route: 065
     Dates: start: 2022

REACTIONS (2)
  - Muscular weakness [Unknown]
  - Pain in extremity [Unknown]

NARRATIVE: CASE EVENT DATE: 20220101
